FAERS Safety Report 13818732 (Version 2)
Quarter: 2018Q1

REPORT INFORMATION
  Report Type: Spontaneous
  Country: US (occurrence: US)
  Receive Date: 20170801
  Receipt Date: 20180208
  Transmission Date: 20180508
  Serious: Yes (Hospitalization)
  Sender: FDA-Public Use
  Company Number: US-PERRIGO-17US025357

PATIENT

DRUGS (4)
  1. ACETAMINOPHEN. [Suspect]
     Active Substance: ACETAMINOPHEN
     Indication: PRODUCT USED FOR UNKNOWN INDICATION
     Dosage: 1000 MG, QD
     Route: 048
     Dates: start: 20150611, end: 20150612
  2. BYSTOLIC [Concomitant]
     Active Substance: NEBIVOLOL HYDROCHLORIDE
     Indication: HYPERTENSION
     Dosage: 5 MG, QD
     Route: 048
  3. SEVERE ALLERGY PLUS SINUS HEADACHE [Suspect]
     Active Substance: ACETAMINOPHEN\DIPHENHYDRAMINE HYDROCHLORIDE\PHENYLEPHRINE HYDROCHLORIDE
     Indication: RASH
     Dosage: UNK
     Route: 048
     Dates: start: 20150614
  4. MOTRIN [Suspect]
     Active Substance: IBUPROFEN
     Indication: PYREXIA
     Dosage: UNK
     Route: 048
     Dates: start: 201506, end: 201506

REACTIONS (16)
  - Skin wound [Unknown]
  - Oral mucosal blistering [Unknown]
  - Blister [Unknown]
  - Vision blurred [Recovered/Resolved with Sequelae]
  - Feeding disorder [Unknown]
  - Rash generalised [Unknown]
  - Skin exfoliation [Unknown]
  - Wound infection staphylococcal [Recovered/Resolved]
  - Toxic epidermal necrolysis [Recovered/Resolved with Sequelae]
  - Urinary tract infection [Recovered/Resolved]
  - Eye swelling [Unknown]
  - Throat irritation [Unknown]
  - Pyrexia [Unknown]
  - Scab [Unknown]
  - Stomatitis [Unknown]
  - Eye disorder [Recovered/Resolved with Sequelae]

NARRATIVE: CASE EVENT DATE: 2015
